FAERS Safety Report 5032273-9 (Version None)
Quarter: 2006Q2

REPORT INFORMATION
  Report Type: 
  Country: None (occurrence: None)
  Receive Date: 20060619
  Receipt Date: 20060613
  Transmission Date: 20061013
  Serious: Yes (Hospitalization)
  Sender: FDA-Public Use
  Company Number: 17281

PATIENT
  Age: 54 Year
  Sex: Male
  Weight: 167.8309 kg

DRUGS (9)
  1. NICOTINE GUM/4MG/PERRIGO COMPANY [Suspect]
     Indication: SMOKING CESSATION THERAPY
     Dosage: 1 PIECE/10 TIMES DAILY/ORALLY
     Route: 048
  2. FENTANYL [Concomitant]
  3. ZONEGRAN [Concomitant]
  4. LEVOXYL [Concomitant]
  5. DIOVAN [Concomitant]
  6. ZANTAC [Concomitant]
  7. PROZAC [Concomitant]
  8. VERAPAMIL [Concomitant]
  9. LITHIUM CARBONATE [Concomitant]

REACTIONS (4)
  - CELLULITIS [None]
  - DIABETES MELLITUS NON-INSULIN-DEPENDENT [None]
  - HYPERKALAEMIA [None]
  - KNEE ARTHROPLASTY [None]
